FAERS Safety Report 6176599-4 (Version None)
Quarter: 2009Q2

REPORT INFORMATION
  Report Type: 
  Country: None (occurrence: None)
  Receive Date: 20090501
  Receipt Date: 20090422
  Transmission Date: 20091009
  Serious: Yes (Hospitalization, Disabling)
  Sender: FDA-Public Use
  Company Number: US-GENENTECH-279300

PATIENT
  Age: 66 Year
  Sex: Male
  Weight: 77.11 kg

DRUGS (4)
  1. TENECTEPLASE [Suspect]
     Indication: CEREBROVASCULAR ACCIDENT
     Dosage: UNK
  2. AGGRENOX [Suspect]
     Indication: PROPHYLAXIS
     Dosage: 25/200 MG, BID
     Dates: start: 20050101, end: 20090226
  3. LIPITOR [Concomitant]
     Indication: DRUG USE FOR UNKNOWN INDICATION
     Dosage: 10 MG, QD
  4. VERAPAMIL EXTENDED-RELEASE [Concomitant]
     Indication: DRUG USE FOR UNKNOWN INDICATION
     Dosage: 120 MG, QD

REACTIONS (3)
  - APHASIA [None]
  - CEREBROVASCULAR ACCIDENT [None]
  - HAEMORRHAGE INTRACRANIAL [None]
